FAERS Safety Report 8226316-9 (Version None)
Quarter: 2012Q1

REPORT INFORMATION
  Report Type: 
  Country: None (occurrence: None)
  Receive Date: 20120321
  Receipt Date: 20120313
  Transmission Date: 20120608
  Serious: Yes (Other)
  Sender: FDA-Public Use
  Company Number: CN-ROCHE-1048487

PATIENT
  Age: 50 Year
  Sex: Female
  Weight: 80 kg

DRUGS (3)
  1. PACLITAXEL [Concomitant]
     Indication: BREAST CANCER
     Dates: start: 20110701
  2. HERCEPTIN [Suspect]
     Route: 041
     Dates: start: 20110701
  3. HERCEPTIN [Suspect]
     Indication: BREAST CANCER
     Route: 041

REACTIONS (6)
  - METASTASES TO BONE [None]
  - METASTASES TO LIVER [None]
  - HEPATIC LESION [None]
  - PURULENT DISCHARGE [None]
  - PROTHROMBIN TIME PROLONGED [None]
  - ONYCHOMADESIS [None]
